FAERS Safety Report 5129599-7 (Version None)
Quarter: 2006Q4

REPORT INFORMATION
  Report Type: 
  Country: None (occurrence: None)
  Receive Date: 20061018
  Receipt Date: 20061011
  Transmission Date: 20070319
  Serious: Yes (Life-Threatening, Hospitalization)
  Sender: FDA-Public Use
  Company Number: IT-BAYER-200614636GDS

PATIENT
  Age: 80 Year
  Sex: Male
  Weight: 70 kg

DRUGS (5)
  1. SORAFENIB [Suspect]
     Indication: BILE DUCT CANCER
     Dosage: TOTAL DAILY DOSE: 800 MG
     Route: 048
     Dates: start: 20060920, end: 20061004
  2. MODURETIC 5-50 [Concomitant]
     Indication: HYPERTENSION
     Route: 048
     Dates: start: 20060920
  3. DELTACORTENE FORTE (PREDNISOLONE) [Concomitant]
     Indication: RASH
     Route: 048
     Dates: start: 20060920, end: 20061010
  4. TRIMETON [Concomitant]
     Indication: RASH
     Route: 048
     Dates: start: 20060920, end: 20061010
  5. LANSOX [Concomitant]
     Indication: PROPHYLAXIS
     Route: 048
     Dates: start: 20060920

REACTIONS (2)
  - MELAENA [None]
  - SYNCOPE [None]
